FAERS Safety Report 17825972 (Version 1)
Quarter: 2020Q2

REPORT INFORMATION
  Report Type: Spontaneous
  Country: US (occurrence: US)
  Receive Date: 20200526
  Receipt Date: 20200526
  Transmission Date: 20200714
  Serious: Yes (Death)
  Sender: FDA-Public Use
  Company Number: US-FRESENIUS KABI-FK202005135

PATIENT
  Age: 3 Month
  Sex: Male

DRUGS (7)
  1. MILRINONE (MANUFACTURER UNKOWN) [Suspect]
     Active Substance: MILRINONE
     Indication: PULMONARY HYPERTENSION
     Dosage: UNKNOWN
     Route: 065
  2. DEXMEDETOMIDINE (MANUFACTURER UNKNOWN) [Suspect]
     Active Substance: DEXMEDETOMIDINE
     Indication: SEDATIVE THERAPY
     Dosage: UNKNOWN
     Route: 065
  3. MIDAZOLAM (MANUFACTURER UNKNOWN) [Suspect]
     Active Substance: MIDAZOLAM HYDROCHLORIDE
     Indication: SEDATIVE THERAPY
     Dosage: UNKNOWN
     Route: 065
  4. VASOPRESSIN INJECTION (MANUFACTURER UNKNOWN) [Suspect]
     Active Substance: VASOPRESSIN
     Indication: RESPIRATORY FAILURE
     Dosage: UNKNOWN
     Route: 065
  5. FENTANYL (MANUFACTURER UNKNOWN) [Suspect]
     Active Substance: FENTANYL
     Indication: SEDATIVE THERAPY
     Dosage: UNKNOWN
     Route: 065
  6. DOPAMINE (MANUFACTURER UNKNOWN) [Suspect]
     Active Substance: DOPAMINE HYDROCHLORIDE
     Indication: RESPIRATORY FAILURE
     Dosage: UNKNOWN
     Route: 065
  7. NITRIC OXIDE. [Suspect]
     Active Substance: NITRIC OXIDE
     Indication: PULMONARY HYPERTENSION
     Dosage: UNKNOWN
     Route: 065

REACTIONS (1)
  - Treatment failure [Fatal]
